FAERS Safety Report 7720596-1 (Version None)
Quarter: 2011Q3

REPORT INFORMATION
  Report Type: 
  Country: None (occurrence: None)
  Receive Date: 20110831
  Receipt Date: 20110817
  Transmission Date: 20111222
  Serious: Yes (Other)
  Sender: FDA-Public Use
  Company Number: US-ELI_LILLY_AND_COMPANY-US201104005970

PATIENT
  Sex: Female

DRUGS (4)
  1. FORTEO [Suspect]
     Dosage: 20 UG, QD
  2. FORTEO [Suspect]
     Dosage: 20 UG, QD
  3. FORTEO [Suspect]
     Indication: OSTEOPOROSIS
     Dosage: 20 UG, QD
     Dates: start: 20110201
  4. FORTEO [Suspect]
     Dosage: 20 UG, QD

REACTIONS (11)
  - VITAMIN D DECREASED [None]
  - JOINT SWELLING [None]
  - OVERDOSE [None]
  - NERVOUSNESS [None]
  - OEDEMA PERIPHERAL [None]
  - GAIT DISTURBANCE [None]
  - INJECTION SITE PAIN [None]
  - INJECTION SITE HAEMATOMA [None]
  - WEIGHT INCREASED [None]
  - PAIN IN EXTREMITY [None]
  - MUSCULAR WEAKNESS [None]
